FAERS Safety Report 25529060 (Version 1)
Quarter: 2025Q3

REPORT INFORMATION
  Report Type: Spontaneous
  Country: US (occurrence: None)
  Receive Date: 20250707
  Receipt Date: 20250707
  Transmission Date: 20251020
  Serious: Yes (Hospitalization)
  Sender: FDA-CTU
  Company Number: None

PATIENT
  Age: 34 Year
  Sex: Male

DRUGS (3)
  1. RINVOQ [Suspect]
     Active Substance: UPADACITINIB
     Indication: Crohn^s disease
     Dosage: 45 MG DAILY ORAL
     Route: 048
     Dates: start: 20250611
  2. RINVOQ [Suspect]
     Active Substance: UPADACITINIB
     Indication: Rheumatoid arthritis
  3. Rinvoq ER 45mg Tablets [Concomitant]
     Dates: start: 20250611

REACTIONS (2)
  - Anaemia [None]
  - Crohn^s disease [None]

NARRATIVE: CASE EVENT DATE: 20250703
